FAERS Safety Report 17944743 (Version 2)
Quarter: 2020Q3

REPORT INFORMATION
  Report Type: Spontaneous
  Country: IT (occurrence: IT)
  Receive Date: 20200626
  Receipt Date: 20200703
  Transmission Date: 20201103
  Serious: Yes (Hospitalization, Other)
  Sender: FDA-Public Use
  Company Number: IT-AUROBINDO-AUR-APL-2020-030084

PATIENT
  Age: 18 Month
  Sex: Female

DRUGS (13)
  1. PARACETAMOL [Suspect]
     Active Substance: ACETAMINOPHEN
     Indication: PAIN
     Dosage: 15 MILLIGRAM/KILOGRAM
     Route: 048
  2. CORTICOTROPIN [Suspect]
     Active Substance: CORTICOTROPIN
     Indication: EPILEPTIC ENCEPHALOPATHY
     Dosage: UNK,RECEIVED DURING THE FIRST MONTHS OF LIFE
     Route: 065
  3. FENTANYL. [Suspect]
     Active Substance: FENTANYL
     Indication: PAIN
     Dosage: 2 MICROGRAM/KILOGRAM
     Route: 065
  4. PHENOBARBITAL. [Suspect]
     Active Substance: PHENOBARBITAL
     Indication: EPILEPTIC ENCEPHALOPATHY
     Dosage: 5 MILLIGRAM/KILOGRAM, ONCE A DAY
     Route: 065
  5. LEVETIRACETAM. [Suspect]
     Active Substance: LEVETIRACETAM
     Indication: EPILEPTIC ENCEPHALOPATHY
     Dosage: 10 MILLIGRAM/KILOGRAM, ONCE A DAY
     Route: 065
  6. TETRABENAZINE. [Suspect]
     Active Substance: TETRABENAZINE
     Indication: DYSTONIA
     Dosage: 7.5 MILLIGRAM/KILOGRAM, ONCE A DAY
     Route: 065
  7. VIGABATRIN. [Suspect]
     Active Substance: VIGABATRIN
     Indication: EPILEPTIC ENCEPHALOPATHY
     Dosage: UNK,RECEIVED DURING THE FIRST MONTHS OF LIFE
     Route: 065
  8. BACLOFEN. [Suspect]
     Active Substance: BACLOFEN
     Indication: DYSTONIA
     Dosage: 1.8 MILLIGRAM/KILOGRAM, ONCE A DAY
     Route: 065
  9. GABAPENTIN. [Suspect]
     Active Substance: GABAPENTIN
     Indication: DYSTONIA
     Dosage: 24 MILLIGRAM/KILOGRAM, ONCE A DAY
     Route: 065
  10. MORPHINE [Suspect]
     Active Substance: MORPHINE
     Indication: PAIN
     Dosage: 0.3?0.4 MG/ KG/DOSE
     Route: 065
  11. IBUPROFEN. [Suspect]
     Active Substance: IBUPROFEN
     Indication: PAIN
     Dosage: 10 MILLIGRAM/KILOGRAM
     Route: 048
  12. LORAZEPAM. [Suspect]
     Active Substance: LORAZEPAM
     Indication: DYSTONIA
     Dosage: 0.05 MILLIGRAM/KILOGRAM/DOSE
     Route: 065
  13. SODIUM VALPROATE [Suspect]
     Active Substance: VALPROATE SODIUM
     Indication: EPILEPTIC ENCEPHALOPATHY
     Dosage: 50 MILLIGRAM/KILOGRAM, ONCE A DAY
     Route: 065

REACTIONS (2)
  - Drug ineffective [Unknown]
  - Off label use [Unknown]
